FAERS Safety Report 4867433-0 (Version None)
Quarter: 2005Q4

REPORT INFORMATION
  Report Type: 
  Country: None (occurrence: None)
  Receive Date: 20051228
  Receipt Date: 20041116
  Transmission Date: 20060501
  Serious: Yes (Hospitalization, Disabling, Other)
  Sender: FDA-Public Use
  Company Number: US-MERCK-0411USA02849

PATIENT
  Age: 53 Year
  Sex: Female
  Weight: 98 kg

DRUGS (20)
  1. VIOXX [Suspect]
     Indication: FIBROMYALGIA
     Route: 048
     Dates: start: 20010721, end: 20040517
  2. VIOXX [Suspect]
     Indication: CARPAL TUNNEL SYNDROME
     Route: 048
     Dates: start: 20010721, end: 20040517
  3. ULTRAM [Concomitant]
     Indication: FIBROMYALGIA
     Route: 048
     Dates: start: 20010101
  4. NEXIUM [Concomitant]
     Indication: GASTROOESOPHAGEAL REFLUX DISEASE
     Route: 048
  5. DETROL [Concomitant]
     Indication: URGE INCONTINENCE
     Route: 048
  6. CALCIUM (UNSPECIFIED) [Concomitant]
     Route: 048
  7. CALCITRIOL [Concomitant]
     Indication: BLOOD CALCIUM DECREASED
     Route: 048
  8. PROMETHAZINE [Concomitant]
     Route: 065
  9. LEVAQUIN [Concomitant]
     Route: 065
  10. FLEXERIL [Concomitant]
     Route: 065
  11. MAG-OX 400 TABLETS [Concomitant]
     Route: 065
  12. TRANSDERM-NITRO [Concomitant]
     Route: 065
  13. CEPHALEXIN [Concomitant]
     Route: 065
  14. OMEPRAZOLE [Concomitant]
     Route: 065
  15. NORETHINDRONE [Concomitant]
     Route: 065
  16. ZELNORM [Concomitant]
     Route: 065
  17. AVELOX [Concomitant]
     Route: 065
  18. DICLOFENAC [Concomitant]
     Route: 065
  19. [THERAPY UNSPECIFIED] [Concomitant]
     Route: 065
     Dates: start: 19990428
  20. RELAFEN [Concomitant]
     Route: 065

REACTIONS (31)
  - ANAEMIA [None]
  - BLOOD CHOLESTEROL INCREASED [None]
  - CAROTID ARTERY ATHEROMA [None]
  - CEREBRAL INFARCTION [None]
  - CEREBROVASCULAR ACCIDENT [None]
  - CHOLELITHIASIS [None]
  - CONFUSIONAL STATE [None]
  - CONVULSION [None]
  - DEPRESSION [None]
  - DIZZINESS [None]
  - DYSARTHRIA [None]
  - DYSPHAGIA [None]
  - DYSPNOEA [None]
  - EPISTAXIS [None]
  - FATIGUE [None]
  - HEADACHE [None]
  - HEMIPARESIS [None]
  - HYPERLIPIDAEMIA [None]
  - HYPERPARATHYROIDISM [None]
  - HYPERTENSION [None]
  - INTERNATIONAL NORMALISED RATIO DECREASED [None]
  - MALAISE [None]
  - MYDRIASIS [None]
  - NAUSEA [None]
  - OEDEMA PERIPHERAL [None]
  - PAIN [None]
  - SPEECH DISORDER [None]
  - SYNCOPE [None]
  - THERAPEUTIC RESPONSE DECREASED [None]
  - TRANSIENT ISCHAEMIC ATTACK [None]
  - UNRESPONSIVE TO PAIN STIMULI [None]
